FAERS Safety Report 8522522-4 (Version None)
Quarter: 2012Q3

REPORT INFORMATION
  Report Type: 
  Country: None (occurrence: None)
  Receive Date: 20120719
  Receipt Date: 20120706
  Transmission Date: 20120928
  Serious: No
  Sender: FDA-Public Use
  Company Number: US-ASTRAZENECA-2012SE46819

PATIENT
  Sex: Female
  Weight: 70.3 kg

DRUGS (4)
  1. TOPROL-XL [Suspect]
     Indication: ATRIAL FIBRILLATION
     Route: 048
  2. TOPROL-XL [Suspect]
     Route: 048
     Dates: start: 20120516
  3. TOPROL-XL [Suspect]
     Route: 048
     Dates: start: 20120516
  4. TOPROL-XL [Suspect]
     Indication: PALPITATIONS
     Route: 048

REACTIONS (2)
  - OFF LABEL USE [None]
  - PALPITATIONS [None]
